FAERS Safety Report 20266276 (Version 1)
Quarter: 2021Q4

REPORT INFORMATION
  Report Type: Spontaneous
  Country: CN (occurrence: CN)
  Receive Date: 20211231
  Receipt Date: 20211231
  Transmission Date: 20220303
  Serious: Yes (Hospitalization, Other)
  Sender: FDA-Public Use
  Company Number: CN-009507513-2112CHN010380

PATIENT
  Age: 59 Year
  Sex: Male
  Weight: 78 kg

DRUGS (1)
  1. CILASTATIN SODIUM\IMIPENEM [Suspect]
     Active Substance: CILASTATIN SODIUM\IMIPENEM
     Indication: Anti-infective therapy
     Dosage: 1 GRAM, Q8H(ALSO REPORTED AS 1 TIME A DAY)
     Route: 041
     Dates: start: 20210813, end: 20210824

REACTIONS (4)
  - Clostridium difficile colitis [Recovered/Resolved]
  - Dysbiosis [Recovered/Resolved]
  - Myelosuppression [Unknown]
  - Fungal test positive [Unknown]

NARRATIVE: CASE EVENT DATE: 20210813
